FAERS Safety Report 6137512-9 (Version None)
Quarter: 2009Q1

REPORT INFORMATION
  Report Type: 
  Country: None (occurrence: None)
  Receive Date: 20090326
  Receipt Date: 20090310
  Transmission Date: 20090719
  Serious: Yes (Death)
  Sender: FDA-Public Use
  Company Number: 000524

PATIENT
  Sex: Male

DRUGS (1)
  1. NEUPRO [Suspect]

REACTIONS (5)
  - ANAEMIA [None]
  - DEMENTIA [None]
  - LEUKAEMIA [None]
  - PNEUMONIA [None]
  - WOUND [None]
